FAERS Safety Report 9311814 (Version 1)
Quarter: 2013Q2

REPORT INFORMATION
  Report Type: Spontaneous
  Country: JP (occurrence: JP)
  Receive Date: 20130528
  Receipt Date: 20130528
  Transmission Date: 20140414
  Serious: Yes (Other)
  Sender: FDA-Public Use
  Company Number: PHHY2013JP050599

PATIENT
  Age: 55 Year
  Sex: Female

DRUGS (3)
  1. CICLOSPORIN [Suspect]
     Indication: ORGANISING PNEUMONIA
  2. PREDNISOLONE [Suspect]
     Indication: ORGANISING PNEUMONIA
     Dosage: 0.5 MG/KG, UNK
     Route: 048
  3. SARGRAMOSTIM [Suspect]

REACTIONS (5)
  - Autoimmune disorder [Recovering/Resolving]
  - Alveolar proteinosis [Recovering/Resolving]
  - Hypoxia [Unknown]
  - Sinus tachycardia [Unknown]
  - Drug ineffective [Recovering/Resolving]
